FAERS Safety Report 8236885-0 (Version None)
Quarter: 2012Q1

REPORT INFORMATION
  Report Type: 
  Country: None (occurrence: None)
  Receive Date: 20120327
  Receipt Date: 20120321
  Transmission Date: 20120608
  Serious: Yes (Hospitalization, Other)
  Sender: FDA-Public Use
  Company Number: US-ABBOTT-12P-163-0915547-00

PATIENT
  Sex: Female
  Weight: 71.732 kg

DRUGS (6)
  1. LOVENOX [Concomitant]
     Indication: PRODUCT USED FOR UNKNOWN INDICATION
     Dosage: DAILY
  2. ZYRTEC [Concomitant]
     Indication: PRODUCT USED FOR UNKNOWN INDICATION
     Dosage: DAILY
     Route: 048
  3. COUMADIN [Concomitant]
     Indication: PRODUCT USED FOR UNKNOWN INDICATION
     Dosage: DAILY
     Route: 048
  4. PROTONIX [Concomitant]
     Indication: PRODUCT USED FOR UNKNOWN INDICATION
     Dosage: DAILY
     Route: 048
  5. HUMIRA [Suspect]
     Dates: start: 20120225
  6. HUMIRA [Suspect]
     Indication: CROHN'S DISEASE
     Dates: start: 20071101, end: 20110201

REACTIONS (7)
  - HAEMORRHAGE [None]
  - JOINT SWELLING [None]
  - ARTHRALGIA [None]
  - ASTHMA [None]
  - INTESTINAL STENOSIS [None]
  - FAT TISSUE INCREASED [None]
  - CROHN'S DISEASE [None]
